FAERS Safety Report 19001424 (Version 1)
Quarter: 2021Q1

REPORT INFORMATION
  Report Type: Spontaneous
  Country: US (occurrence: US)
  Receive Date: 20210311
  Receipt Date: 20210311
  Transmission Date: 20210420
  Serious: Yes (Hospitalization, Other)
  Sender: FDA-Public Use
  Company Number: US-AUROBINDO-AUR-APL-2021-009492

PATIENT
  Age: 9 Year

DRUGS (8)
  1. PANTOPRAZOLE [Concomitant]
     Active Substance: PANTOPRAZOLE
     Indication: PRODUCT USED FOR UNKNOWN INDICATION
     Dosage: 1 MILLIGRAM/KILOGRAM, TWO TIMES A DAY
     Route: 042
  2. CRIZOTINIB [Concomitant]
     Active Substance: CRIZOTINIB
     Indication: NEUROBLASTOMA
     Dosage: 250 MILLIGRAM, TWO TIMES A DAY (FOR ABOUT ONE MONTH PRIOR TO HOSPITALISATION)
     Route: 048
  3. CERITINIB [Concomitant]
     Active Substance: CERITINIB
     Indication: PRODUCT USED FOR UNKNOWN INDICATION
     Dosage: UNK
     Route: 065
  4. SUCRALFATE. [Concomitant]
     Active Substance: SUCRALFATE
     Indication: OESOPHAGEAL PAIN
     Dosage: 10 GRAM, 3 TIMES A DAY
     Route: 048
  5. METHADONE [Concomitant]
     Active Substance: METHADONE HYDROCHLORIDE
     Indication: CANCER PAIN
     Dosage: 2 MILLIGRAM, TWO TIMES A DAY (FOR THE LAST TWO MONTHS PRIOR TO HOSPITALISATION)
     Route: 048
  6. PANTOPRAZOLE [Concomitant]
     Active Substance: PANTOPRAZOLE
     Indication: PRODUCT USED FOR UNKNOWN INDICATION
     Dosage: 2 MILLIGRAM/KILOGRAM, ONCE A DAY
     Route: 065
  7. OXYCODONE HYDROCHLORIDE ORAL SOLUTION [Suspect]
     Active Substance: OXYCODONE HYDROCHLORIDE
     Indication: BREAKTHROUGH PAIN
     Dosage: UNK
     Route: 065
  8. MESALAZINE [Concomitant]
     Active Substance: MESALAMINE
     Indication: PRODUCT USED FOR UNKNOWN INDICATION
     Dosage: 1 GRAM, DAILY (FOR TWO WEEKS AFTER DISCHARGE)
     Route: 054

REACTIONS (2)
  - Electrocardiogram QT prolonged [Unknown]
  - Electrocardiogram repolarisation abnormality [Unknown]
